FAERS Safety Report 4975566-3 (Version None)
Quarter: 2006Q2

REPORT INFORMATION
  Report Type: 
  Country: None (occurrence: None)
  Receive Date: 20060410
  Receipt Date: 20060328
  Transmission Date: 20061013
  Serious: Yes (Life-Threatening, Hospitalization)
  Sender: FDA-Public Use
  Company Number: ES200603006461

PATIENT
  Age: 86 Year
  Sex: Female

DRUGS (4)
  1. ZYPREXA [Suspect]
     Dosage: 5 MG, DAILY (1/D), ORAL
     Route: 048
     Dates: start: 20050201
  2. SPIRIVA [Concomitant]
  3. PHENYTOIN SODIUM CAP [Concomitant]
  4. DISGREN (TRIFLUSAL) [Concomitant]

REACTIONS (1)
  - CEREBRAL INFARCTION [None]
